FAERS Safety Report 9014280 (Version 2)
Quarter: 2013Q2

REPORT INFORMATION
  Report Type: Spontaneous
  Country: JP (occurrence: JP)
  Receive Date: 20130115
  Receipt Date: 20130411
  Transmission Date: 20140414
  Serious: Yes (Other)
  Sender: FDA-Public Use
  Company Number: PHHY2013JP002636

PATIENT
  Age: 3 Year
  Sex: Male
  Weight: 9 kg

DRUGS (5)
  1. CICLOSPORIN [Suspect]
     Indication: STEM CELL TRANSPLANT
  2. METHYLPREDNISOLONE [Suspect]
     Indication: STEM CELL TRANSPLANT
  3. BUSULFAN [Concomitant]
  4. FLUDARABINE [Concomitant]
  5. MELPHALAN [Concomitant]
     Dosage: UNK

REACTIONS (7)
  - Diarrhoea [Recovering/Resolving]
  - Neutrophil count increased [Recovering/Resolving]
  - Jaundice [Recovering/Resolving]
  - Acute graft versus host disease [Recovering/Resolving]
  - Chronic graft versus host disease [Recovering/Resolving]
  - Erythema [Recovering/Resolving]
  - Weight decreased [Recovering/Resolving]
